FAERS Safety Report 5291351-X (Version None)
Quarter: 2007Q2

REPORT INFORMATION
  Report Type: 
  Country: None (occurrence: None)
  Receive Date: 20070409
  Receipt Date: 20070402
  Transmission Date: 20071010
  Serious: Yes (Hospitalization, Disabling)
  Sender: FDA-Public Use
  Company Number: US-MERCK-0509USA04013

PATIENT
  Age: 56 Year
  Sex: Female
  Weight: 75 kg

DRUGS (1)
  1. FOSAMAX [Suspect]
     Indication: OSTEOPOROSIS
     Route: 048
     Dates: start: 20020401, end: 20030301

REACTIONS (63)
  - ABDOMINAL PAIN [None]
  - ANORECTAL DISORDER [None]
  - ANTINUCLEAR ANTIBODY POSITIVE [None]
  - ANXIETY [None]
  - ATRIAL FIBRILLATION [None]
  - ATRIAL FLUTTER [None]
  - BACK PAIN [None]
  - BENIGN NEOPLASM OF SPINAL CORD [None]
  - BIPOLAR DISORDER [None]
  - BONE DISORDER [None]
  - BONE GRAFT [None]
  - BREAST CYST [None]
  - BREAST NEOPLASM [None]
  - BURSITIS [None]
  - CARDIAC DISORDER [None]
  - DEAFNESS NEUROSENSORY [None]
  - DEPRESSION [None]
  - DIZZINESS [None]
  - DRY EYE [None]
  - ESSENTIAL HYPERTENSION [None]
  - EUSTACHIAN TUBE DYSFUNCTION [None]
  - FATIGUE [None]
  - FIBROMA [None]
  - GASTROINTESTINAL NEOPLASM [None]
  - HEAD INJURY [None]
  - HEADACHE [None]
  - HEPATIC ENZYME INCREASED [None]
  - HEPATIC STEATOSIS [None]
  - HYPERHIDROSIS [None]
  - HYPERLIPIDAEMIA [None]
  - HYPOAESTHESIA [None]
  - INSOMNIA [None]
  - MASTOIDITIS [None]
  - MOUTH HAEMORRHAGE [None]
  - MUSCULOSKELETAL PAIN [None]
  - NAUSEA [None]
  - NECK INJURY [None]
  - NECK PAIN [None]
  - NERVE INJURY [None]
  - NOCTURIA [None]
  - OBSESSIVE-COMPULSIVE DISORDER [None]
  - ORAL CANDIDIASIS [None]
  - OSTEOMYELITIS [None]
  - OSTEONECROSIS [None]
  - PULMONARY VASCULAR DISORDER [None]
  - PYREXIA [None]
  - RASH [None]
  - RECTAL SPASM [None]
  - RED BLOOD CELL SEDIMENTATION RATE INCREASED [None]
  - RESTLESS LEGS SYNDROME [None]
  - RHINITIS ALLERGIC [None]
  - ROAD TRAFFIC ACCIDENT [None]
  - SELECTIVE IGG SUBCLASS DEFICIENCY [None]
  - SEXUAL DYSFUNCTION [None]
  - SINUSITIS [None]
  - SPINAL COLUMN STENOSIS [None]
  - STRESS URINARY INCONTINENCE [None]
  - SUPRAVENTRICULAR TACHYCARDIA [None]
  - SYNOVIAL CYST [None]
  - TENDON DISORDER [None]
  - TOOTH ANKYLOSIS [None]
  - VAGINAL INFECTION [None]
  - VENTRICULAR TACHYCARDIA [None]
